FAERS Safety Report 20614575 (Version 1)
Quarter: 2022Q1

REPORT INFORMATION
  Report Type: Spontaneous
  Country: IT (occurrence: IT)
  Receive Date: 20220321
  Receipt Date: 20220321
  Transmission Date: 20220423
  Serious: Yes (Hospitalization)
  Sender: FDA-Public Use
  Company Number: IT-SUN PHARMACEUTICAL INDUSTRIES LTD-2022RR-330048

PATIENT
  Age: 79 Year
  Sex: Female

DRUGS (8)
  1. GABAPENTIN [Suspect]
     Active Substance: GABAPENTIN
     Indication: Product used for unknown indication
     Dosage: 4 GRAM, IN TOTAL
     Route: 048
     Dates: start: 20220113, end: 20220113
  2. OLANZAPINE [Suspect]
     Active Substance: OLANZAPINE
     Indication: Psychotic disorder
     Dosage: 260 MILLIGRAM, IN TOTAL
     Route: 048
     Dates: start: 20220113, end: 20220113
  3. ASPIRIN [Suspect]
     Active Substance: ASPIRIN
     Indication: Thrombosis prophylaxis
     Dosage: 900 MILLIGRAM, IN TOTAL
     Route: 048
     Dates: start: 20220113, end: 20220113
  4. FLUVOXAMINE MALEATE [Suspect]
     Active Substance: FLUVOXAMINE MALEATE
     Indication: Major depression
     Dosage: 3.5 GRAM, IN TOTAL
     Route: 048
     Dates: start: 20220113, end: 20220113
  5. ACETAMINOPHEN [Suspect]
     Active Substance: ACETAMINOPHEN
     Indication: Product used for unknown indication
     Dosage: 25 GRAM, IN TOTAL
     Route: 048
     Dates: start: 20220113, end: 20220113
  6. RIFAXIMIN [Suspect]
     Active Substance: RIFAXIMIN
     Indication: Product used for unknown indication
     Dosage: 2.5 GRAM, IN TOTAL
     Route: 048
     Dates: start: 20220113, end: 20220113
  7. PANTOPRAZOLE [Concomitant]
     Active Substance: PANTOPRAZOLE
     Indication: Gastrointestinal disorder
     Dosage: 40 MILLIGRAM, UNK
     Route: 048
  8. LEVOTHYROXINE SODIUM [Concomitant]
     Active Substance: LEVOTHYROXINE SODIUM
     Indication: Hypothyroidism
     Dosage: 25 MICROGRAM, UNK
     Route: 048

REACTIONS (4)
  - Loss of consciousness [Recovered/Resolved]
  - Bradypnoea [Recovered/Resolved]
  - Intentional self-injury [Recovered/Resolved]
  - Vomiting [Recovered/Resolved]

NARRATIVE: CASE EVENT DATE: 20220113
